FAERS Safety Report 14247492 (Version 1)
Quarter: 2017Q4

REPORT INFORMATION
  Report Type: Spontaneous
  Country: RU (occurrence: RU)
  Receive Date: 20171204
  Receipt Date: 20171204
  Transmission Date: 20180321
  Serious: Yes (Other)
  Sender: FDA-Public Use
  Company Number: RU-COVIS PHARMA B.V.-2017COV01126

PATIENT
  Age: 64 Year
  Sex: Male
  Weight: 70 kg

DRUGS (7)
  1. OMEPRAZOLE MAGNESIUM. [Suspect]
     Active Substance: OMEPRAZOLE MAGNESIUM
     Route: 048
  2. SOVIGRIPP [Suspect]
     Active Substance: INFLUENZA VIRUS VACCINE
     Dosage: UNK
     Dates: start: 20170929
  3. ACETYLSALICYLIC ACID, MAGNESIUM HYDROXIDE [Suspect]
     Active Substance: ASPIRIN\MAGNESIUM HYDROXIDE
  4. ATORVASTATIN [Suspect]
     Active Substance: ATORVASTATIN
  5. VALSARTAN. [Suspect]
     Active Substance: VALSARTAN
  6. BETALOC ZOK [Suspect]
     Active Substance: METOPROLOL SUCCINATE
     Route: 048
  7. BRILINTA [Suspect]
     Active Substance: TICAGRELOR
     Indication: MYOCARDIAL INFARCTION
     Dosage: 90 MG, 2X/DAY
     Route: 048
     Dates: start: 201708

REACTIONS (8)
  - Loss of consciousness [Recovered/Resolved]
  - Contusion [Unknown]
  - Drug interaction [Unknown]
  - Blood pressure abnormal [Recovered/Resolved]
  - Cough [Recovered/Resolved]
  - Dyspnoea [Unknown]
  - Road traffic accident [Recovered/Resolved]
  - Disorientation [Unknown]

NARRATIVE: CASE EVENT DATE: 201708
